FAERS Safety Report 5132742-7 (Version None)
Quarter: 2006Q4

REPORT INFORMATION
  Report Type: 
  Country: None (occurrence: None)
  Receive Date: 20061023
  Receipt Date: 20061018
  Transmission Date: 20070319
  Serious: Yes (Other)
  Sender: FDA-Public Use
  Company Number: UG-GLAXOSMITHKLINE-B0443291A

PATIENT
  Age: 27 Year
  Sex: Female
  Weight: 60.2 kg

DRUGS (2)
  1. ALBENDAZOLE [Suspect]
     Indication: HELMINTHIC INFECTION
     Dosage: 400MG SINGLE DOSE
     Route: 048
     Dates: start: 20050719, end: 20050719
  2. PRAZIQUANTEL [Suspect]
     Indication: HELMINTHIC INFECTION
     Dosage: 40MGK SINGLE DOSE
     Dates: start: 20050719, end: 20050719

REACTIONS (1)
  - ABORTION SPONTANEOUS [None]
